FAERS Safety Report 8464963-X (Version None)
Quarter: 2012Q2

REPORT INFORMATION
  Report Type: 
  Country: None (occurrence: None)
  Receive Date: 20120626
  Receipt Date: 20120614
  Transmission Date: 20120825
  Serious: Yes (Hospitalization, Other)
  Sender: FDA-Public Use
  Company Number: US-SANOFI-AVENTIS-2012SA037311

PATIENT
  Age: 31 Year
  Sex: Female

DRUGS (1)
  1. APIDRA [Suspect]
     Dosage: PUMP
     Route: 058
     Dates: start: 20120101

REACTIONS (1)
  - DIABETIC KETOACIDOSIS [None]
